FAERS Safety Report 4836952-5 (Version None)
Quarter: 2005Q4

REPORT INFORMATION
  Report Type: 
  Country: None (occurrence: None)
  Receive Date: 20051121
  Receipt Date: 20050712
  Transmission Date: 20060501
  Serious: Yes (Hospitalization)
  Sender: FDA-Public Use
  Company Number: 2005-01281

PATIENT
  Age: 71 Year
  Sex: Male

DRUGS (5)
  1. VELCADE [Suspect]
     Indication: MULTIPLE MYELOMA
     Dosage: 2.60 MG, 2/WEEK, INTRAVENOUS
     Route: 042
     Dates: start: 20050428, end: 20050530
  2. BACTRIM [Suspect]
     Indication: INFECTION PROPHYLAXIS
     Dosage: 3.00, ORAL
     Route: 048
     Dates: start: 20050101, end: 20050627
  3. MEDIATENSYL (URAPIDIL) [Concomitant]
  4. SOTALOL HCL [Concomitant]
  5. ZOMETA [Concomitant]

REACTIONS (21)
  - ABASIA [None]
  - ASTHENIA [None]
  - CENTRAL NERVOUS SYSTEM LESION [None]
  - CERVICAL SPINAL STENOSIS [None]
  - CONSTIPATION [None]
  - DEMYELINATION [None]
  - ELECTROMYOGRAM ABNORMAL [None]
  - HYPOTONIA [None]
  - INTERVERTEBRAL DISC SPACE NARROWING [None]
  - NERVE CONDUCTION STUDIES ABNORMAL [None]
  - NERVOUS SYSTEM DISORDER [None]
  - NEUROPATHY PERIPHERAL [None]
  - OEDEMA PERIPHERAL [None]
  - ORAL INTAKE REDUCED [None]
  - PARAPARESIS [None]
  - POLYNEUROPATHY [None]
  - QUADRIPARESIS [None]
  - SENSORY LOSS [None]
  - SOMNOLENCE [None]
  - SPONDYLITIS [None]
  - URINARY RETENTION [None]
